FAERS Safety Report 19046718 (Version 1)
Quarter: 2021Q1

REPORT INFORMATION
  Report Type: Spontaneous
  Country: JP (occurrence: JP)
  Receive Date: 20210322
  Receipt Date: 20210322
  Transmission Date: 20210420
  Serious: Yes (Hospitalization, Other)
  Sender: FDA-Public Use
  Company Number: JP-AMGEN-JPNSP2021042592

PATIENT
  Age: 71 Year
  Sex: Female

DRUGS (7)
  1. APREMILAST [Suspect]
     Active Substance: APREMILAST
     Indication: PSORIATIC ARTHROPATHY
     Dosage: 60 MILLIGRAM, QD
     Route: 048
  2. ADALIMUMAB [Concomitant]
     Active Substance: ADALIMUMAB
     Dosage: 80 MILLIGRAM
     Route: 058
  3. IXEKIZUMAB [Concomitant]
     Active Substance: IXEKIZUMAB
     Dosage: 160 MG OF (WEEK 0), FOLLOWED BY 80 MG EVERY TWO WEEKS
  4. SECUKINUMAB. [Suspect]
     Active Substance: SECUKINUMAB
     Indication: PSORIATIC ARTHROPATHY
     Dosage: 150 MILLIGRAM AT WEEKS 0, 1, 2, 3, AND 4 AND EVERY FOUR WEEKS THEREAFTER
     Route: 065
  5. PREDNISOLONE. [Suspect]
     Active Substance: PREDNISOLONE
     Indication: THYROIDITIS SUBACUTE
     Dosage: 15 MILLIGRAM, QD
     Route: 065
  6. CELECOXIB. [Suspect]
     Active Substance: CELECOXIB
     Indication: PSORIATIC ARTHROPATHY
     Dosage: 200 MILLIGRAM, QD
     Route: 065
  7. METHOTREXATE. [Suspect]
     Active Substance: METHOTREXATE
     Indication: PSORIATIC ARTHROPATHY
     Dosage: 6 MILLIGRAM, QWK
     Route: 065

REACTIONS (4)
  - Psoriatic arthropathy [Recovering/Resolving]
  - Hypothyroidism [Recovering/Resolving]
  - Therapy non-responder [Unknown]
  - Thyroiditis subacute [Recovered/Resolved]
